FAERS Safety Report 8780140 (Version 1)
Quarter: 2012Q4

REPORT INFORMATION
  Report Type: 
  Country: US (occurrence: None)
  Receive Date: 20120831
  Receipt Date: 20120831
  Transmission Date: 20130627
  Serious: Yes (Hospitalization)
  Sender: FDA-Public Use
  Company Number: None

PATIENT
  Sex: Female
  Weight: 93 kg

DRUGS (2)
  1. CARBOPLATIN [Suspect]
  2. PACLITAXEL (TAXOL) [Suspect]

REACTIONS (14)
  - Urinary tract infection bacterial [None]
  - Diarrhoea [None]
  - Asthenia [None]
  - Paraesthesia [None]
  - Hypomagnesaemia [None]
  - Dehydration [None]
  - Electrocardiogram ST segment depression [None]
  - Chest discomfort [None]
  - Neuralgia [None]
  - Abdominal discomfort [None]
  - Haemoglobin decreased [None]
  - Pain in extremity [None]
  - Paraesthesia oral [None]
  - Electrolyte imbalance [None]
